FAERS Safety Report 19299901 (Version 1)
Quarter: 2021Q2

REPORT INFORMATION
  Report Type: Spontaneous
  Country: US (occurrence: US)
  Receive Date: 20210524
  Receipt Date: 20210524
  Transmission Date: 20210717
  Serious: Yes (Hospitalization)
  Sender: FDA-Public Use
  Company Number: None

PATIENT
  Age: 45 Year
  Sex: Female
  Weight: 110.6 kg

DRUGS (1)
  1. BREYANZI [Suspect]
     Active Substance: LISOCABTAGENE MARALEUCEL
     Indication: DIFFUSE LARGE B-CELL LYMPHOMA
     Dosage: ?          OTHER FREQUENCY:ONCE;?
     Route: 042
     Dates: start: 20210517, end: 20210517

REACTIONS (4)
  - SARS-CoV-2 test positive [None]
  - Pyrexia [None]
  - Malaise [None]
  - Cardiorenal syndrome [None]

NARRATIVE: CASE EVENT DATE: 20210523
